FAERS Safety Report 9248782 (Version 1)
Quarter: 2013Q2

REPORT INFORMATION
  Report Type: Spontaneous
  Country: FR (occurrence: FR)
  Receive Date: 20130423
  Receipt Date: 20130423
  Transmission Date: 20140414
  Serious: Yes (Hospitalization, Other)
  Sender: FDA-Public Use
  Company Number: FR-ELI_LILLY_AND_COMPANY-FR201304003652

PATIENT
  Age: 36 Year
  Sex: Male

DRUGS (8)
  1. ZYPREXA [Suspect]
     Dosage: 10 MG, BID
     Route: 048
     Dates: start: 20130126, end: 20130201
  2. LOXAPAC [Concomitant]
     Dosage: 50 MG, QD
     Dates: start: 20130126, end: 20130201
  3. LOXAPAC [Concomitant]
     Dosage: 50 MG, BID
  4. LYSANXIA [Concomitant]
     Dosage: 40 MG, BID
     Dates: start: 20130126, end: 20130201
  5. DEPAKOTE [Concomitant]
     Dosage: 250 MG, QID
  6. LEVOTHYROX [Concomitant]
     Dosage: 1 DF, UNKNOWN
  7. DIFFU K [Concomitant]
     Dosage: 1 DF, UNKNOWN
  8. ZOPICLONE [Concomitant]
     Dosage: 7.5 MG, QD

REACTIONS (5)
  - Hypoglycaemic coma [Recovered/Resolved]
  - Nervous system disorder [Recovered/Resolved]
  - Mutism [Recovered/Resolved]
  - Disturbance in attention [Recovered/Resolved]
  - Body temperature increased [Recovered/Resolved]
